FAERS Safety Report 7235624-X (Version None)
Quarter: 2011Q1

REPORT INFORMATION
  Report Type: 
  Country: None (occurrence: None)
  Receive Date: 20110110
  Receipt Date: 20101222
  Transmission Date: 20110831
  Serious: Yes (Hospitalization, Other)
  Sender: FDA-Public Use
  Company Number: ALA_01452_2011

PATIENT
  Sex: Female
  Weight: 85.7298 kg

DRUGS (7)
  1. QUETIAPINE [Concomitant]
  2. TRAZODONE HCL [Concomitant]
  3. VENLAFAXINE [Concomitant]
  4. REGLAN [Suspect]
     Indication: NAUSEA
     Dosage: (ORAL)
     Route: 048
     Dates: start: 20080101
  5. REGLAN [Suspect]
     Indication: VOMITING
     Dosage: (ORAL)
     Route: 048
     Dates: start: 20080101
  6. ZOLOFT [Concomitant]
  7. CLOZAPINE [Concomitant]

REACTIONS (14)
  - MENINGITIS VIRAL [None]
  - TORTICOLLIS [None]
  - TEARFULNESS [None]
  - ANXIETY [None]
  - INTENTION TREMOR [None]
  - DEPRESSION [None]
  - RHINITIS ALLERGIC [None]
  - CONVERSION DISORDER [None]
  - SYNCOPE [None]
  - INTERVERTEBRAL DISC PROTRUSION [None]
  - STATUS MIGRAINOSUS [None]
  - PANIC ATTACK [None]
  - THERAPEUTIC RESPONSE DECREASED [None]
  - SINUSITIS [None]
